FAERS Safety Report 6341494-4 (Version None)
Quarter: 2009Q3

REPORT INFORMATION
  Report Type: 
  Country: None (occurrence: None)
  Receive Date: 20090904
  Receipt Date: 20090825
  Transmission Date: 20100115
  Serious: Yes (Other)
  Sender: FDA-Public Use
  Company Number: JP-JNJFOC-20090703870

PATIENT
  Age: 70 Year
  Sex: Female
  Weight: 30.39 kg

DRUGS (4)
  1. ACETAMINOPHEN [Suspect]
     Route: 048
  2. ACETAMINOPHEN [Suspect]
     Indication: PRODUCTIVE COUGH
     Route: 048
  3. INDOMETHACIN [Concomitant]
     Route: 065
  4. ANTIBIOTICS [Concomitant]
     Route: 065

REACTIONS (5)
  - DYSPNOEA [None]
  - HYPERSENSITIVITY [None]
  - PNEUMONIA [None]
  - PYREXIA [None]
  - RASH [None]
